FAERS Safety Report 16005018 (Version 1)
Quarter: 2019Q1

REPORT INFORMATION
  Report Type: Spontaneous
  Country: US (occurrence: US)
  Receive Date: 20190130
  Receipt Date: 20190130
  Transmission Date: 20190418
  Serious: No
  Sender: FDA-Public Use
  Company Number: None

PATIENT
  Age: 53 Year
  Sex: Female

DRUGS (1)
  1. IBRANCE [Suspect]
     Active Substance: PALBOCICLIB
     Indication: BREAST CANCER
     Dates: start: 201901, end: 20190130

REACTIONS (8)
  - Heart rate increased [None]
  - Hypertension [None]
  - Lethargy [None]
  - Weight decreased [None]
  - Depression [None]
  - Decreased appetite [None]
  - Rash [None]
  - Anxiety [None]

NARRATIVE: CASE EVENT DATE: 20190123
